FAERS Safety Report 4392235-1 (Version None)
Quarter: 2004Q3

REPORT INFORMATION
  Report Type: 
  Country: None (occurrence: None)
  Receive Date: 20040702
  Receipt Date: 20040223
  Transmission Date: 20050211
  Serious: Yes (Other)
  Sender: FDA-Public Use
  Company Number: 2004UW03180

PATIENT
  Age: 40 Year
  Sex: Female
  Weight: 69.8539 kg

DRUGS (4)
  1. CRESTOR [Suspect]
     Indication: BLOOD CHOLESTEROL INCREASED
     Dosage: 10 MG PO
     Route: 048
  2. ADDERALL XL [Concomitant]
  3. ZOLOFT [Concomitant]
  4. VENTOLIN [Concomitant]

REACTIONS (2)
  - HEADACHE [None]
  - ILL-DEFINED DISORDER [None]
